FAERS Safety Report 8451781-1 (Version None)
Quarter: 2012Q2

REPORT INFORMATION
  Report Type: 
  Country: None (occurrence: None)
  Receive Date: 20120620
  Receipt Date: 20120319
  Transmission Date: 20120825
  Serious: No
  Sender: FDA-Public Use
  Company Number: US-VERTEX PHARMACEUTICALS INC.-AE-2012-003876

PATIENT
  Sex: Female
  Weight: 70.824 kg

DRUGS (3)
  1. PEGASYS [Concomitant]
     Indication: HEPATITIS C
     Dates: start: 20120305, end: 20120317
  2. RIBAVIRIN [Concomitant]
     Indication: HEPATITIS C
     Dates: start: 20120305, end: 20120317
  3. INCIVEK [Suspect]
     Indication: HEPATITIS C
     Route: 048
     Dates: start: 20120305, end: 20120317

REACTIONS (5)
  - DEPRESSED MOOD [None]
  - TREMOR [None]
  - ASTHENIA [None]
  - WEIGHT DECREASED [None]
  - DYSGEUSIA [None]
